FAERS Safety Report 8695186 (Version 2)
Quarter: 2013Q4

REPORT INFORMATION
  Report Type: Spontaneous
  Country: US (occurrence: US)
  Receive Date: 20120731
  Receipt Date: 20131031
  Transmission Date: 20140711
  Serious: No
  Sender: FDA-Public Use
  Company Number: US-009507513-2012SP029666

PATIENT
  Sex: Female
  Weight: 141 kg

DRUGS (2)
  1. IMPLANON [Suspect]
     Indication: CONTRACEPTION
     Dosage: ONCE IN 3 YEARS
     Route: 058
     Dates: start: 20120126, end: 20120614
  2. NEXIUM [Concomitant]
     Indication: DYSPEPSIA
     Dosage: 20 MG, UNK
     Route: 048
     Dates: start: 20111003

REACTIONS (1)
  - Unintended pregnancy [Not Recovered/Not Resolved]
